FAERS Safety Report 5057071-1 (Version None)
Quarter: 2006Q2

REPORT INFORMATION
  Report Type: 
  Country: None (occurrence: None)
  Receive Date: 20060622
  Receipt Date: 20060418
  Transmission Date: 20061013
  Serious: Yes (Other)
  Sender: FDA-Public Use
  Company Number: US-JNJFOC-20060404549

PATIENT
  Age: 35 Year
  Sex: Male
  Weight: 73.9363 kg

DRUGS (3)
  1. SANDOZ FENTANYL TRANSDERMAL SYSTEM (FENTANYL) PATCH [Suspect]
     Indication: PAIN
     Dosage: 100 UG/HR, 1 IN 72 HOUR, TRANSDERMAL
     Route: 062
     Dates: start: 20050301
  2. HYDROMORPHONE (HYDROMORPHONE) TABLET [Concomitant]
  3. XANAX [Concomitant]

REACTIONS (2)
  - DRUG INEFFECTIVE [None]
  - WEIGHT DECREASED [None]
